FAERS Safety Report 21058054 (Version 1)
Quarter: 2022Q3

REPORT INFORMATION
  Report Type: Spontaneous
  Country: US (occurrence: None)
  Receive Date: 20220707
  Receipt Date: 20220707
  Transmission Date: 20221027
  Serious: No
  Sender: FDA-Public Use
  Company Number: None

PATIENT
  Age: 56 Year
  Sex: Female

DRUGS (1)
  1. ENBREL [Suspect]
     Active Substance: ETANERCEPT
     Indication: Rheumatoid arthritis
     Dosage: 50MG OTHER SUBCUTANEOUS?
     Route: 058
     Dates: start: 202112, end: 202207

REACTIONS (2)
  - Dysarthria [None]
  - Tardive dyskinesia [None]

NARRATIVE: CASE EVENT DATE: 20220401
